FAERS Safety Report 4861151-0 (Version None)
Quarter: 2005Q4

REPORT INFORMATION
  Report Type: 
  Country: None (occurrence: None)
  Receive Date: 20051216
  Receipt Date: 20051130
  Transmission Date: 20060501
  Serious: Yes (Other)
  Sender: FDA-Public Use
  Company Number: USA0509109075

PATIENT
  Age: 36 Year
  Sex: Female
  Weight: 52.1637 kg

DRUGS (3)
  1. CYMBALTA [Suspect]
     Indication: DEPRESSION
     Dosage: 30 MG ORAL
     Route: 048
     Dates: start: 20050728, end: 20050729
  2. PROZAC [Concomitant]
  3. XANAX [Concomitant]

REACTIONS (3)
  - COMPLEX PARTIAL SEIZURES [None]
  - LOSS OF CONSCIOUSNESS [None]
  - SIMPLE PARTIAL SEIZURES [None]
